FAERS Safety Report 5412882-5 (Version None)
Quarter: 2007Q3

REPORT INFORMATION
  Report Type: 
  Country: None (occurrence: None)
  Receive Date: 20070713
  Receipt Date: 20070531
  Transmission Date: 20080115
  Serious: No
  Sender: FDA-Public Use
  Company Number: 2007SP002044

PATIENT
  Age: 46 Year
  Sex: Female
  Weight: 63.9572 kg

DRUGS (1)
  1. LUNESTA [Suspect]
     Indication: INSOMNIA
     Dosage: 2 MG;1X;ORAL
     Route: 048
     Dates: start: 20070530, end: 20070530

REACTIONS (3)
  - DYSGEUSIA [None]
  - INSOMNIA [None]
  - NAUSEA [None]
